FAERS Safety Report 6414181-1 (Version None)
Quarter: 2009Q4

REPORT INFORMATION
  Report Type: 
  Country: None (occurrence: None)
  Receive Date: 20091026
  Receipt Date: 20091014
  Transmission Date: 20100525
  Serious: Yes (Hospitalization)
  Sender: FDA-Public Use
  Company Number: AU-PFIZER INC-2009279249

PATIENT
  Age: 46 Year

DRUGS (7)
  1. CELSENTRI [Suspect]
     Indication: HIV INFECTION
     Dosage: 150 MG, 2X/DAY
     Route: 048
     Dates: start: 20090407
  2. ATAZANAVIR [Concomitant]
     Indication: HIV INFECTION
     Dosage: 300 MG, 1X/DAY
     Route: 048
     Dates: start: 20050212
  3. RITONAVIR [Concomitant]
     Indication: HIV INFECTION
     Dosage: 100 MG, 1X/DAY
     Route: 048
     Dates: start: 20050212
  4. SAQUINAVIR [Concomitant]
     Indication: HIV INFECTION
     Dosage: 1000 MG, 2X/DAY
     Route: 048
     Dates: start: 20050212
  5. TRUVADA [Concomitant]
     Indication: HIV INFECTION
     Dosage: UNK
     Route: 048
     Dates: start: 20080730
  6. VALTREX [Concomitant]
     Indication: HERPES SIMPLEX
     Dosage: 500 MG, 1X/DAY
     Route: 048
     Dates: start: 20000601
  7. REPALYTE [Concomitant]
     Indication: GASTROENTERITIS
     Dosage: 1 UNK, 3X/DAY
     Route: 048
     Dates: start: 19980101

REACTIONS (2)
  - GALLBLADDER DISORDER [None]
  - GASTROENTERITIS [None]
